FAERS Safety Report 12466106 (Version 2)
Quarter: 2016Q3

REPORT INFORMATION
  Report Type: Spontaneous
  Country: US (occurrence: US)
  Receive Date: 20160614
  Receipt Date: 20160909
  Transmission Date: 20161109
  Serious: Yes (Hospitalization)
  Sender: FDA-Public Use
  Company Number: US-ALLERGAN-1659492US

PATIENT
  Age: 53 Year
  Sex: Female
  Weight: 53.52 kg

DRUGS (7)
  1. SERTRALINE AUROBINDO [Concomitant]
     Active Substance: SERTRALINE HYDROCHLORIDE
     Indication: DEPRESSION
  2. SERTRALINE AUROBINDO [Concomitant]
     Active Substance: SERTRALINE HYDROCHLORIDE
     Indication: STRESS
     Dosage: 50 MG, QD
     Dates: start: 201601
  3. LORAZEPAM. [Concomitant]
     Active Substance: LORAZEPAM
     Indication: PRODUCT USED FOR UNKNOWN INDICATION
     Dosage: 30 MG, UNK
  4. FIORICET [Suspect]
     Active Substance: ACETAMINOPHEN\BUTALBITAL\CAFFEINE
     Indication: PRODUCT USED FOR UNKNOWN INDICATION
  5. BUPROPION. [Concomitant]
     Active Substance: BUPROPION
     Indication: PRODUCT USED FOR UNKNOWN INDICATION
     Dosage: 100 MG, QD
     Route: 048
     Dates: start: 20160509, end: 20160510
  6. PROPRANOLOL HCL [Suspect]
     Active Substance: PROPRANOLOL HYDROCHLORIDE
     Dosage: UNK
     Dates: start: 201505
  7. TRAZODONE [Concomitant]
     Active Substance: TRAZODONE HYDROCHLORIDE
     Indication: PRODUCT USED FOR UNKNOWN INDICATION
     Dosage: 50 MG, UNK

REACTIONS (14)
  - Suicide attempt [Recovered/Resolved]
  - Balance disorder [Recovering/Resolving]
  - Muscle twitching [Recovering/Resolving]
  - Decreased appetite [Recovered/Resolved]
  - Flat affect [Recovered/Resolved]
  - Suicidal ideation [Recovered/Resolved]
  - Feeling of body temperature change [Recovered/Resolved]
  - Paraesthesia [Recovered/Resolved]
  - Intentional overdose [Recovered/Resolved]
  - Cognitive disorder [Recovered/Resolved]
  - Nausea [Not Recovered/Not Resolved]
  - Thinking abnormal [Recovered/Resolved]
  - Somnolence [Recovering/Resolving]
  - Insomnia [Recovered/Resolved]

NARRATIVE: CASE EVENT DATE: 201601
